FAERS Safety Report 9160627 (Version 2)
Quarter: 2013Q1

REPORT INFORMATION
  Report Type: Spontaneous
  Country: NL (occurrence: None)
  Receive Date: 20130219
  Receipt Date: 20130226
  Transmission Date: 20140127
  Serious: Yes (Hospitalization)
  Sender: FDA-Public Use
  Company Number: 2013-0683

PATIENT
  Age: 41 Year
  Sex: Male

DRUGS (2)
  1. SOMATULINE [Suspect]
     Indication: ENZYME INHIBITION
     Dosage: 90 MG (90 MG, 1 IN 28 D)
     Route: 058
     Dates: start: 20130116
  2. SOMATULINE [Suspect]
     Indication: OFF LABEL USE
     Dosage: 90 MG (90 MG, 1 IN 28 D)
     Route: 058
     Dates: start: 20130116

REACTIONS (1)
  - Blood magnesium decreased [None]
